FAERS Safety Report 4638217-3 (Version None)
Quarter: 2005Q2

REPORT INFORMATION
  Report Type: 
  Country: None (occurrence: None)
  Receive Date: 20050415
  Receipt Date: 20050405
  Transmission Date: 20051028
  Serious: Yes (Other)
  Sender: FDA-Public Use
  Company Number: 2005054415

PATIENT
  Sex: Male

DRUGS (1)
  1. UNISOM [Suspect]
     Dosage: 20 PILLS ONCE, ORAL
     Route: 048

REACTIONS (1)
  - CONVULSION [None]
